FAERS Safety Report 7325195-1 (Version None)
Quarter: 2011Q1

REPORT INFORMATION
  Report Type: 
  Country: None (occurrence: None)
  Receive Date: 20110218
  Receipt Date: 20110207
  Transmission Date: 20110831
  Serious: Yes (Other)
  Sender: FDA-Public Use
  Company Number: 825903

PATIENT
  Age: 85 Year
  Sex: Female

DRUGS (1)
  1. DOBUTAMINE HCL [Suspect]
     Indication: STRESS ECHOCARDIOGRAM
     Dosage: 10 MCG/KG/MIN INCREMENTS AT 3 MIN; INTRAVEOUS DRIP
     Route: 041

REACTIONS (3)
  - BACK PAIN [None]
  - HYPOTENSION [None]
  - STRESS CARDIOMYOPATHY [None]
